FAERS Safety Report 5022096-9 (Version None)
Quarter: 2006Q2

REPORT INFORMATION
  Report Type: 
  Country: None (occurrence: None)
  Receive Date: 20060609
  Receipt Date: 20050816
  Transmission Date: 20061013
  Serious: Yes (Disabling, Other)
  Sender: FDA-Public Use
  Company Number: PHNR2005AU01240

PATIENT
  Sex: Female

DRUGS (2)
  1. ANDROCUR [Suspect]
     Dosage: 50 MG, DAILY
  2. ESTRADIOL [Suspect]
     Dosage: 37.5 PATCH
     Route: 062
     Dates: start: 20050101

REACTIONS (2)
  - BACK PAIN [None]
  - OESOPHAGEAL ULCER [None]
